FAERS Safety Report 10418816 (Version 5)
Quarter: 2015Q1

REPORT INFORMATION
  Report Type: Report from Study
  Country: US (occurrence: US)
  Receive Date: 20140829
  Receipt Date: 20150305
  Transmission Date: 20150720
  Serious: Yes (Hospitalization)
  Sender: FDA-Public Use
  Company Number: US-SA-2014SA073583

PATIENT
  Age: 53 Year
  Sex: Female

DRUGS (2)
  1. AUBAGIO [Suspect]
     Active Substance: TERIFLUNOMIDE
     Indication: MULTIPLE SCLEROSIS
     Dosage: PILLS
     Route: 048
     Dates: start: 20140509
  2. AUBAGIO [Suspect]
     Active Substance: TERIFLUNOMIDE
     Indication: MULTIPLE SCLEROSIS
     Dosage: PILLS
     Route: 048

REACTIONS (6)
  - Sleep disorder [Unknown]
  - Dyspnoea [Unknown]
  - Drug dose omission [Unknown]
  - Pleurisy [Unknown]
  - Multiple sclerosis relapse [Unknown]
  - Muscle spasms [Unknown]
